FAERS Safety Report 4429750-8 (Version None)
Quarter: 2004Q3

REPORT INFORMATION
  Report Type: 
  Country: None (occurrence: None)
  Receive Date: 20040820
  Receipt Date: 20040524
  Transmission Date: 20050211
  Serious: Yes (Hospitalization)
  Sender: FDA-Public Use
  Company Number: DE-BRISTOL-MYERS SQUIBB COMPANY-12603122

PATIENT
  Age: 66 Year
  Sex: Female

DRUGS (3)
  1. ENDOXAN [Suspect]
     Indication: BREAST CANCER
     Route: 048
     Dates: start: 20030702, end: 20030716
  2. FLUOROURACIL [Suspect]
     Indication: BREAST CANCER
     Dosage: THERAPY DATES: 02 TO 09-JUL-2003
     Route: 042
     Dates: start: 20030709, end: 20030709
  3. EPIRUBICIN [Suspect]
     Indication: BREAST CANCER
     Dosage: THERAPY DATES: 02 TO 09-JUL-2003
     Route: 042
     Dates: start: 20030709, end: 20030709

REACTIONS (6)
  - ANAL FISSURE [None]
  - DEPRESSION [None]
  - FATIGUE [None]
  - PANCYTOPENIA [None]
  - PROCTALGIA [None]
  - RECTAL ULCER [None]
